FAERS Safety Report 11622938 (Version 1)
Quarter: 2015Q4

REPORT INFORMATION
  Report Type: Spontaneous
  Country: US (occurrence: US)
  Receive Date: 20151013
  Receipt Date: 20151013
  Transmission Date: 20160304
  Serious: No
  Sender: FDA-Public Use
  Company Number: US-JNJFOC-20150111468

PATIENT
  Age: 1 Month
  Sex: Male
  Weight: 3.18 kg

DRUGS (2)
  1. ACETAMINOPHEN FOR CHILDREN [Suspect]
     Active Substance: ACETAMINOPHEN
     Indication: PRODUCT USED FOR UNKNOWN INDICATION
     Route: 048
     Dates: start: 20140103
  2. ACETAMINOPHEN FOR CHILDREN [Suspect]
     Active Substance: ACETAMINOPHEN
     Route: 048

REACTIONS (1)
  - Incorrect drug dosage form administered [Unknown]
